FAERS Safety Report 15567764 (Version 2)
Quarter: 2018Q4

REPORT INFORMATION
  Report Type: Report from Study
  Country: TH (occurrence: TH)
  Receive Date: 20181030
  Receipt Date: 20181128
  Transmission Date: 20190205
  Serious: Yes (Death, Hospitalization)
  Sender: FDA-Public Use
  Company Number: TH-BAYER-2018-198255

PATIENT
  Age: 53 Year
  Sex: Male

DRUGS (2)
  1. STIVARGA [Suspect]
     Active Substance: REGORAFENIB
     Indication: COLORECTAL CANCER
  2. STIVARGA [Suspect]
     Active Substance: REGORAFENIB
     Indication: RENAL CANCER

REACTIONS (10)
  - Drug intolerance [None]
  - Sneezing [None]
  - Skin exfoliation [None]
  - Drug hypersensitivity [None]
  - Lung neoplasm malignant [Fatal]
  - Infection [None]
  - Mouth ulceration [None]
  - Hospitalisation [None]
  - Nasopharyngitis [None]
  - Hypoaesthesia [None]

NARRATIVE: CASE EVENT DATE: 20171003
